FAERS Safety Report 6555918-0 (Version None)
Quarter: 2010Q1

REPORT INFORMATION
  Report Type: 
  Country: None (occurrence: None)
  Receive Date: 20100128
  Receipt Date: 20100119
  Transmission Date: 20100710
  Serious: Yes (Other)
  Sender: FDA-Public Use
  Company Number: SE-WYE-H13162810

PATIENT
  Sex: Male

DRUGS (5)
  1. CORDARONE [Suspect]
     Indication: ATRIAL FIBRILLATION
     Route: 048
     Dates: start: 20091112, end: 20091121
  2. CORDARONE [Suspect]
     Route: 048
     Dates: start: 20091122
  3. SIMVASTATIN [Concomitant]
     Dosage: NOT PROVIDED
  4. ATACAND [Concomitant]
     Dosage: NOT PROVIDED
  5. WARAN [Concomitant]
     Dosage: NOT PROVIDED
     Dates: start: 20091101

REACTIONS (10)
  - ASTHENIA [None]
  - CHILLS [None]
  - COUGH [None]
  - DRUG EFFECT DECREASED [None]
  - DYSPNOEA [None]
  - EYE PRURITUS [None]
  - HEADACHE [None]
  - HYPERHIDROSIS [None]
  - MUSCLE SPASMS [None]
  - TREMOR [None]
